FAERS Safety Report 19440327 (Version 1)
Quarter: 2021Q2

REPORT INFORMATION
  Report Type: Spontaneous
  Country: US (occurrence: US)
  Receive Date: 20210621
  Receipt Date: 20210621
  Transmission Date: 20210717
  Serious: No
  Sender: FDA-Public Use
  Company Number: US-JNJFOC-20210632455

PATIENT
  Age: 53 Year
  Sex: Female

DRUGS (26)
  1. BENADRYL [Suspect]
     Active Substance: DIPHENHYDRAMINE HYDROCHLORIDE
     Indication: DIPLOPIA
  2. PEPCID [Suspect]
     Active Substance: FAMOTIDINE
     Indication: DIARRHOEA
     Route: 065
     Dates: start: 202106
  3. PEPCID [Suspect]
     Active Substance: FAMOTIDINE
     Indication: DIZZINESS
  4. BENADRYL [Suspect]
     Active Substance: DIPHENHYDRAMINE HYDROCHLORIDE
     Indication: PAIN IN EXTREMITY
  5. BENADRYL [Suspect]
     Active Substance: DIPHENHYDRAMINE HYDROCHLORIDE
     Indication: HEADACHE
  6. PEPCID [Suspect]
     Active Substance: FAMOTIDINE
     Indication: HYPERHIDROSIS
  7. BENADRYL [Suspect]
     Active Substance: DIPHENHYDRAMINE HYDROCHLORIDE
     Indication: DIZZINESS
  8. PEPCID [Suspect]
     Active Substance: FAMOTIDINE
     Indication: DIPLOPIA
  9. PEPCID [Suspect]
     Active Substance: FAMOTIDINE
     Indication: PAIN IN EXTREMITY
  10. PEPCID [Suspect]
     Active Substance: FAMOTIDINE
     Indication: PYREXIA
  11. BENADRYL [Suspect]
     Active Substance: DIPHENHYDRAMINE HYDROCHLORIDE
     Indication: VOMITING
  12. PEPCID [Suspect]
     Active Substance: FAMOTIDINE
     Indication: PAIN
  13. BENADRYL [Suspect]
     Active Substance: DIPHENHYDRAMINE HYDROCHLORIDE
     Indication: PAIN
  14. BENADRYL [Suspect]
     Active Substance: DIPHENHYDRAMINE HYDROCHLORIDE
     Indication: PYREXIA
  15. PEPCID [Suspect]
     Active Substance: FAMOTIDINE
     Indication: VOMITING
  16. PEPCID [Suspect]
     Active Substance: FAMOTIDINE
     Indication: HEADACHE
  17. BENADRYL [Suspect]
     Active Substance: DIPHENHYDRAMINE HYDROCHLORIDE
     Indication: PAROSMIA
  18. PEPCID [Suspect]
     Active Substance: FAMOTIDINE
     Indication: NAUSEA
  19. BENADRYL [Suspect]
     Active Substance: DIPHENHYDRAMINE HYDROCHLORIDE
     Indication: HYPERHIDROSIS
  20. BENADRYL [Suspect]
     Active Substance: DIPHENHYDRAMINE HYDROCHLORIDE
     Indication: VACCINATION COMPLICATION
  21. PEPCID [Suspect]
     Active Substance: FAMOTIDINE
     Indication: CHILLS
  22. PEPCID [Suspect]
     Active Substance: FAMOTIDINE
     Indication: VACCINATION COMPLICATION
  23. BENADRYL [Suspect]
     Active Substance: DIPHENHYDRAMINE HYDROCHLORIDE
     Indication: DIARRHOEA
     Route: 065
     Dates: start: 202106
  24. BENADRYL [Suspect]
     Active Substance: DIPHENHYDRAMINE HYDROCHLORIDE
     Indication: CHILLS
  25. BENADRYL [Suspect]
     Active Substance: DIPHENHYDRAMINE HYDROCHLORIDE
     Indication: NAUSEA
  26. PEPCID [Suspect]
     Active Substance: FAMOTIDINE
     Indication: PAROSMIA

REACTIONS (2)
  - Therapeutic response unexpected [Unknown]
  - Product use in unapproved indication [Unknown]

NARRATIVE: CASE EVENT DATE: 202106
